FAERS Safety Report 22125483 (Version 1)
Quarter: 2023Q1

REPORT INFORMATION
  Report Type: Report from Study
  Country: CO (occurrence: CO)
  Receive Date: 20230322
  Receipt Date: 20230322
  Transmission Date: 20230417
  Serious: Yes (Hospitalization, Other)
  Sender: FDA-Public Use
  Company Number: CO-20230316-10435.0

PATIENT
  Age: 49 Year
  Sex: Female

DRUGS (1)
  1. CERTOLIZUMAB PEGOL [Suspect]
     Active Substance: CERTOLIZUMAB PEGOL
     Indication: Rheumatoid arthritis
     Dosage: 400 MILLIGRAM, EV 30 DAYS
     Route: 058
     Dates: start: 20201001, end: 20230127

REACTIONS (1)
  - Rhinitis [Recovered/Resolved]

NARRATIVE: CASE EVENT DATE: 20230216
